FAERS Safety Report 16161501 (Version 2)
Quarter: 2019Q2

REPORT INFORMATION
  Report Type: Spontaneous
  Country: US (occurrence: US)
  Receive Date: 20190405
  Receipt Date: 20190423
  Transmission Date: 20190711
  Serious: No
  Sender: FDA-Public Use
  Company Number: PHEH2019US013935

PATIENT
  Sex: Female

DRUGS (1)
  1. TRIAMCINOLONE ACETONIDE. [Suspect]
     Active Substance: TRIAMCINOLONE ACETONIDE
     Indication: SCAR
     Dosage: UNK UNK, QD
     Route: 065
     Dates: start: 20190317

REACTIONS (3)
  - Product leakage [Unknown]
  - Product packaging issue [Unknown]
  - Accidental exposure to product [Unknown]
